FAERS Safety Report 25606382 (Version 1)
Quarter: 2025Q3

REPORT INFORMATION
  Report Type: Spontaneous
  Country: US (occurrence: US)
  Receive Date: 20250725
  Receipt Date: 20250725
  Transmission Date: 20251021
  Serious: Yes (Other)
  Sender: ALEXION PHARMACEUTICALS
  Company Number: US-ASTRAZENECA-202507GLO012369US

PATIENT
  Age: 38 Year
  Sex: Male
  Weight: 94.2 kg

DRUGS (7)
  1. NEXIUM [Suspect]
     Active Substance: ESOMEPRAZOLE MAGNESIUM
  2. NAPROXEN [Concomitant]
     Active Substance: NAPROXEN
  3. PANTOPRAZOLE [Concomitant]
     Active Substance: PANTOPRAZOLE
  4. OXYCODONE [Concomitant]
     Active Substance: OXYCODONE
  5. MIDAZOLAM [Concomitant]
     Active Substance: MIDAZOLAM
  6. VITAMINS [Concomitant]
     Active Substance: VITAMINS
  7. CEPHALEXIN [Concomitant]
     Active Substance: CEPHALEXIN

REACTIONS (2)
  - Gastric cancer [Unknown]
  - Gastrointestinal stromal tumour [Unknown]
